FAERS Safety Report 8249876-0 (Version None)
Quarter: 2012Q2

REPORT INFORMATION
  Report Type: 
  Country: None (occurrence: None)
  Receive Date: 20120402
  Receipt Date: 20120328
  Transmission Date: 20120825
  Serious: Yes (Other)
  Sender: FDA-Public Use
  Company Number: PHEH2011US06447

PATIENT
  Sex: Female

DRUGS (6)
  1. GILENYA [Suspect]
     Indication: MULTIPLE SCLEROSIS
     Dosage: 0.5 MG, QD
     Route: 048
     Dates: start: 20110713, end: 20120127
  2. CYMBALTA [Concomitant]
     Indication: DEPRESSION
     Dosage: 60 MG, BID
     Route: 048
  3. SYNTHROID [Concomitant]
     Indication: HYPOTHYROIDISM
     Dosage: 150 UG, QD
     Route: 048
  4. GABAPENTIN [Concomitant]
     Indication: PAIN
     Dosage: 300 MG, TID
     Route: 048
  5. VYTONE [Concomitant]
     Indication: BLOOD PRESSURE ABNORMAL
     Dosage: 20 MG, DAILY
  6. DIOVAN [Concomitant]
     Indication: BLOOD PRESSURE ABNORMAL
     Dosage: 160 MG, DAILY
     Route: 048

REACTIONS (4)
  - VISUAL IMPAIRMENT [None]
  - RETINAL DISORDER [None]
  - MACULAR OEDEMA [None]
  - CATARACT NUCLEAR [None]
